FAERS Safety Report 4341000-X (Version None)
Quarter: 2004Q2

REPORT INFORMATION
  Report Type: 
  Country: None (occurrence: None)
  Receive Date: 20040413
  Receipt Date: 20040406
  Transmission Date: 20050107
  Serious: Yes (Other)
  Sender: FDA-Public Use
  Company Number: NSADSS2003015972

PATIENT
  Age: 22 Year
  Sex: Female
  Weight: 92.5338 kg

DRUGS (3)
  1. ORTHO EVRA [Suspect]
     Indication: CONTRACEPTION
     Dosage: 1, 3 IN 4 WEEK, TRANSDERMAL
     Route: 062
  2. PRENATE GT (PRENATE ^SANOFI WINTHROP^ [Concomitant]
  3. ALBUTEROL [Concomitant]

REACTIONS (5)
  - ASTHMA [None]
  - COMPLICATIONS OF MATERNAL EXPOSURE TO THERAPEUTIC DRUGS [None]
  - HEADACHE [None]
  - PREGNANCY [None]
  - VERTIGO [None]
